FAERS Safety Report 5105823-1 (Version None)
Quarter: 2006Q3

REPORT INFORMATION
  Report Type: 
  Country: None (occurrence: None)
  Receive Date: 20060912
  Receipt Date: 20060829
  Transmission Date: 20061208
  Serious: Yes (Death)
  Sender: FDA-Public Use
  Company Number: CLOF-10296

PATIENT
  Age: 67 Year
  Sex: Male

DRUGS (11)
  1. CLOFARABINE [Suspect]
     Indication: ACUTE MYELOID LEUKAEMIA
     Dosage: 87.2 MG DAILY IV
     Route: 042
     Dates: start: 20060715, end: 20060719
  2. CYTARABINE [Suspect]
     Indication: ACUTE MYELOID LEUKAEMIA
     Dosage: 1990 MG DAILY IV
     Route: 042
     Dates: start: 20060715, end: 20060719
  3. FLAGYL [Concomitant]
  4. NPH INSULIN [Concomitant]
  5. ATENOLOL [Concomitant]
  6. ALLOPURINOL [Concomitant]
  7. FAMVIR [Concomitant]
  8. ALTACE [Concomitant]
  9. LASIX [Concomitant]
  10. CEFEPIME [Concomitant]
  11. FLUCONAZOLE [Concomitant]

REACTIONS (10)
  - BACTERIAL INFECTION [None]
  - BLOOD CULTURE POSITIVE [None]
  - FEBRILE NEUTROPENIA [None]
  - HYPOXIA [None]
  - PANCYTOPENIA [None]
  - PNEUMONIA [None]
  - RENAL FAILURE [None]
  - RESPIRATORY DISTRESS [None]
  - RESPIRATORY FAILURE [None]
  - SEPSIS [None]
